FAERS Safety Report 9720631 (Version 2)
Quarter: 2014Q2

REPORT INFORMATION
  Report Type: Report from Study
  Country: FR (occurrence: FR)
  Receive Date: 20131129
  Receipt Date: 20140616
  Transmission Date: 20141212
  Serious: Yes (Hospitalization, Other)
  Sender: FDA-Public Use
  Company Number: PHHY2013FR136879

PATIENT
  Age: 73 Year
  Sex: Male
  Weight: 65 kg

DRUGS (7)
  1. TASIGNA [Suspect]
     Indication: CHRONIC MYELOID LEUKAEMIA
     Dosage: 300 MG, BID
     Route: 048
     Dates: start: 20120915, end: 20130610
  2. RAMIPRIL [Concomitant]
     Indication: PROPHYLAXIS
     Dosage: 10 MG, QD
     Dates: start: 20130606
  3. KARDEGIC [Concomitant]
     Indication: PROPHYLAXIS
     Dosage: 160 MG, QD
     Dates: start: 20130606, end: 20130606
  4. KARDEGIC [Concomitant]
     Dosage: 75 MG, QD
     Dates: start: 20130709
  5. CRESTOR [Concomitant]
     Indication: PROPHYLAXIS
     Dosage: 5 MG, QD
     Route: 048
     Dates: start: 20130606
  6. EFIENT [Concomitant]
     Indication: PROPHYLAXIS
     Dosage: 10 MG, QD
     Dates: start: 20130606, end: 20130606
  7. BISOPROLOL [Concomitant]
     Indication: PROPHYLAXIS
     Dosage: 7.5 MG, QD
     Route: 048
     Dates: start: 20130606

REACTIONS (1)
  - Myocardial ischaemia [Recovered/Resolved with Sequelae]
